FAERS Safety Report 9775195 (Version 1)
Quarter: 2013Q4

REPORT INFORMATION
  Report Type: Spontaneous
  Country: US (occurrence: None)
  Receive Date: 20131219
  Receipt Date: 20131219
  Transmission Date: 20140711
  Serious: Yes (Disabling)
  Sender: FDA-Public Use
  Company Number: None

PATIENT
  Age: 63 Year
  Sex: Male
  Weight: 117.94 kg

DRUGS (1)
  1. MIRAPEX [Suspect]
     Indication: RESTLESS LEGS SYNDROME
     Route: 048
     Dates: start: 20121201, end: 20131218

REACTIONS (14)
  - Quality of life decreased [None]
  - Burning sensation [None]
  - Burning sensation [None]
  - Restless legs syndrome [None]
  - Condition aggravated [None]
  - Paraesthesia [None]
  - Hypoaesthesia [None]
  - Hypoaesthesia [None]
  - Micturition urgency [None]
  - Dysuria [None]
  - Insomnia [None]
  - Sudden onset of sleep [None]
  - Hyperphagia [None]
  - Drug effect decreased [None]
